FAERS Safety Report 19589577 (Version 2)
Quarter: 2021Q3

REPORT INFORMATION
  Report Type: Report from Study
  Country: PL (occurrence: PL)
  Receive Date: 20210721
  Receipt Date: 20210801
  Transmission Date: 20211014
  Serious: Yes (Death)
  Sender: FDA-Public Use
  Company Number: PL-KARYOPHARM-2021KPT000934

PATIENT
  Age: 55 Year
  Sex: Female

DRUGS (10)
  1. CYCLOPHOSPHAMIDE. [Concomitant]
     Active Substance: CYCLOPHOSPHAMIDE
  2. DEXAMETHASONE. [Concomitant]
     Active Substance: DEXAMETHASONE
     Indication: PLASMA CELL MYELOMA
  3. BACTRIM [Concomitant]
     Active Substance: SULFAMETHOXAZOLE\TRIMETHOPRIM
  4. GLIBETIC [GLIPIZIDE] [Concomitant]
     Active Substance: GLIPIZIDE
  5. THALIDOMIDE [Concomitant]
     Active Substance: THALIDOMIDE
  6. SELINEXOR [Suspect]
     Active Substance: SELINEXOR
     Indication: PLASMA CELL MYELOMA
     Dosage: UNK
     Route: 048
     Dates: start: 20210105, end: 20210113
  7. LYRICA [Concomitant]
     Active Substance: PREGABALIN
  8. METFORMAX [Concomitant]
     Active Substance: METFORMIN HYDROCHLORIDE
  9. ASPARGIN [MAGNESIUM ASPARTATE;POTASSIUM ASPARTATE] [Concomitant]
  10. HEVIRAN [ACICLOVIR] [Concomitant]
     Active Substance: ACYCLOVIR

REACTIONS (1)
  - Plasma cell myeloma [Fatal]
